FAERS Safety Report 10489571 (Version 1)
Quarter: 2014Q4

REPORT INFORMATION
  Report Type: Spontaneous
  Country: NL (occurrence: NL)
  Receive Date: 20141002
  Receipt Date: 20141002
  Transmission Date: 20150528
  Serious: Yes (Hospitalization)
  Sender: FDA-Public Use
  Company Number: NL-ASTRAZENECA-2014SE71523

PATIENT
  Age: 63 Year
  Sex: Female

DRUGS (11)
  1. MONO CEDOCARD [Concomitant]
     Route: 048
  2. LIDOCAINE. [Suspect]
     Active Substance: LIDOCAINE
     Indication: LOCAL ANAESTHESIA
     Route: 065
     Dates: start: 20140312
  3. SYMBICORT [Concomitant]
     Active Substance: BUDESONIDE\FORMOTEROL FUMARATE DIHYDRATE
     Dosage: 2 DD 1 - INHALPDR 400/12MCG/DO 60DO TWO TIMES A DAY
     Route: 055
  4. LYRICA [Concomitant]
     Active Substance: PREGABALIN
     Route: 048
  5. LIDOCAINE. [Suspect]
     Active Substance: LIDOCAINE
     Indication: LOCAL ANAESTHESIA
     Route: 058
  6. BISOPROLOL [Concomitant]
     Active Substance: BISOPROLOL
     Route: 048
  7. RAMIPRIL. [Concomitant]
     Active Substance: RAMIPRIL
     Route: 048
  8. MONTELUKAST [Concomitant]
     Active Substance: MONTELUKAST SODIUM
     Route: 048
  9. ARCOXIA [Concomitant]
     Active Substance: ETORICOXIB
     Route: 048
  10. DESLORATADINE. [Concomitant]
     Active Substance: DESLORATADINE
     Route: 048
  11. SIMVASTATINE [Concomitant]
     Active Substance: SIMVASTATIN
     Route: 048

REACTIONS (2)
  - Speech disorder [Recovered/Resolved with Sequelae]
  - Hypertension [Recovered/Resolved]

NARRATIVE: CASE EVENT DATE: 20140312
